FAERS Safety Report 6123337-7 (Version None)
Quarter: 2009Q1

REPORT INFORMATION
  Report Type: 
  Country: None (occurrence: None)
  Receive Date: 20090318
  Receipt Date: 20090309
  Transmission Date: 20090719
  Serious: Yes (Other)
  Sender: FDA-Public Use
  Company Number: PHHO2009IT03453

PATIENT
  Sex: Male

DRUGS (1)
  1. EXELON [Suspect]
     Indication: DEMENTIA
     Dosage: 5 CM2
     Route: 062
     Dates: start: 20090305, end: 20090309

REACTIONS (7)
  - FALL [None]
  - HEAD INJURY [None]
  - LIMB INJURY [None]
  - MALAISE [None]
  - SYNCOPE [None]
  - VENTRICULAR EXTRASYSTOLES [None]
  - VERTIGO [None]
